FAERS Safety Report 13195344 (Version 3)
Quarter: 2017Q1

REPORT INFORMATION
  Report Type: Report from Study
  Country: DE (occurrence: DE)
  Receive Date: 20170208
  Receipt Date: 20170210
  Transmission Date: 20170428
  Serious: Yes (Hospitalization, Other)
  Sender: FDA-Public Use
  Company Number: DE-ROCHE-1889202

PATIENT
  Age: 49 Year
  Sex: Male
  Weight: 107.4 kg

DRUGS (7)
  1. SOLU-DECORTIN [Concomitant]
     Active Substance: PREDNISOLONE SODIUM SUCCINATE
     Route: 042
     Dates: start: 20170201, end: 20170201
  2. PARACETAMOL [Concomitant]
     Active Substance: ACETAMINOPHEN
     Route: 048
     Dates: start: 20170202, end: 20170202
  3. L THYROX [Concomitant]
     Route: 048
     Dates: start: 201610
  4. ZOPICLONE [Concomitant]
     Active Substance: ZOPICLONE
     Route: 048
     Dates: start: 20170202, end: 20170202
  5. RANITIC [Concomitant]
     Active Substance: RANITIDINE HYDROCHLORIDE
     Route: 042
     Dates: start: 20170201, end: 20170201
  6. RITUXIMAB [Suspect]
     Active Substance: RITUXIMAB
     Indication: CHRONIC LYMPHOCYTIC LEUKAEMIA
     Dosage: DATE OF LAST DOSE PRIOR TO SAE:01/FEB/2017?LAST DAILY DOSE: 888 MG
     Route: 042
     Dates: start: 20170201
  7. FENISTIL (GERMANY) [Concomitant]
     Route: 042
     Dates: start: 20170201, end: 20170201

REACTIONS (1)
  - Hyperuricaemia [Recovered/Resolved]

NARRATIVE: CASE EVENT DATE: 20170202
